FAERS Safety Report 7237405-X (Version None)
Quarter: 2011Q1

REPORT INFORMATION
  Report Type: 
  Country: None (occurrence: None)
  Receive Date: 20110121
  Receipt Date: 20110119
  Transmission Date: 20110831
  Serious: Yes (Hospitalization, Other)
  Sender: FDA-Public Use
  Company Number: JP-PFIZER INC-2010176912

PATIENT
  Age: 50 Year
  Sex: Male
  Weight: 60 kg

DRUGS (17)
  1. ZOLOFT [Suspect]
     Dosage: 50 MG, 2X/DAY
     Dates: start: 20100604, end: 20100606
  2. ZOLOFT [Suspect]
     Dosage: 50 MG, 2X/DAY
     Dates: start: 20100507, end: 20100514
  3. ZOLOFT [Suspect]
     Dosage: 75 MG, 2X/DAY
     Dates: start: 20100515, end: 20100603
  4. PAXIL [Suspect]
     Indication: ANTIDEPRESSANT THERAPY
     Dosage: 20 MG, 1X/DAY
     Dates: end: 20100430
  5. DIAZEPAM [Suspect]
     Dosage: 5 MG, 3X/DAY
     Dates: start: 20100601, end: 20100605
  6. ZOLOFT [Suspect]
     Dosage: 25 MG, 2X/DAY
     Dates: start: 20100607, end: 20100608
  7. ZOLOFT [Suspect]
     Dosage: 25 MG, 2X/DAY
     Dates: start: 20100501, end: 20100504
  8. AMOXAN [Suspect]
     Dosage: 50 MG, 1X/DAY
     Dates: start: 20100607
  9. REMERON [Suspect]
     Indication: ANTIDEPRESSANT THERAPY
     Dosage: 15 MG, 2X/DAY
     Dates: start: 20100101, end: 20100608
  10. DIAZEPAM [Suspect]
     Indication: ANXIETY
     Dosage: 5 MG, 2X/DAY
     Dates: start: 20100529, end: 20100531
  11. DIAZEPAM [Suspect]
     Dosage: 10 MG, 3X/DAY
     Dates: start: 20100606
  12. ZOLOFT [Suspect]
     Indication: DEPRESSION
     Dosage: 25 MG, 1X/DAY
     Route: 048
     Dates: start: 20100428, end: 20100430
  13. ZOLOFT [Suspect]
     Dosage: 25 AND 50 MG, 2X/DAY
     Dates: start: 20100505, end: 20100506
  14. PAXIL [Suspect]
     Dosage: 10 MG, 1X/DAY
     Dates: start: 20100501, end: 20100504
  15. LEXOTAN [Suspect]
     Indication: ANXIETY
     Dosage: 5 MG, 3X/DAY
     Dates: end: 20100523
  16. CONTOMIN [Suspect]
     Indication: ANXIETY
     Dosage: 5 MG, 3X/DAY
     Dates: start: 20100524, end: 20100526
  17. CONTOMIN [Suspect]
     Dosage: 6 MG, 3X/DAY
     Dates: start: 20100527

REACTIONS (2)
  - SEROTONIN SYNDROME [None]
  - DISSOCIATION [None]
